FAERS Safety Report 5133786-1 (Version None)
Quarter: 2006Q4

REPORT INFORMATION
  Report Type: 
  Country: None (occurrence: None)
  Receive Date: 20061018
  Receipt Date: 20061005
  Transmission Date: 20070319
  Serious: Yes (Hospitalization)
  Sender: FDA-Public Use
  Company Number: 2006121477

PATIENT
  Age: 76 Year
  Sex: Female

DRUGS (6)
  1. CELEBREX [Suspect]
     Dosage: ORAL
     Route: 048
     Dates: start: 20060731
  2. CIPROFLOXACIN [Suspect]
     Indication: PROPHYLAXIS
     Dates: start: 20060810
  3. BACTRIM [Suspect]
     Indication: PYELONEPHRITIS
     Dates: start: 20060818, end: 20060831
  4. ROCEPHIN [Suspect]
     Indication: PYELONEPHRITIS
     Dates: start: 20060810
  5. ACETAMINOPHEN [Concomitant]
  6. MORPHINE SULFATE [Concomitant]

REACTIONS (1)
  - STEVENS-JOHNSON SYNDROME [None]
